FAERS Safety Report 9470181 (Version 1)
Quarter: 2013Q3

REPORT INFORMATION
  Report Type: Spontaneous
  Country: US (occurrence: US)
  Receive Date: 20130822
  Receipt Date: 20130822
  Transmission Date: 20140515
  Serious: Yes (Other)
  Sender: FDA-Public Use
  Company Number: US-COVIDIEN/TYCO HEALTHCARE/MALLINCKRODT-T201303816

PATIENT
  Sex: Female

DRUGS (2)
  1. GABLOFEN [Suspect]
     Indication: MUSCLE SPASTICITY
     Dosage: 200 MCG/DAY
     Route: 037
  2. GABLOFEN [Suspect]
     Dosage: 150 MCG/DAY
     Route: 037

REACTIONS (2)
  - Urinary retention [Not Recovered/Not Resolved]
  - Musculoskeletal pain [Not Recovered/Not Resolved]
